FAERS Safety Report 4301109-3 (Version None)
Quarter: 2004Q1

REPORT INFORMATION
  Report Type: 
  Country: None (occurrence: None)
  Receive Date: 20040219
  Receipt Date: 20040204
  Transmission Date: 20041129
  Serious: Yes (Hospitalization)
  Sender: FDA-Public Use
  Company Number: 2004IM000229

PATIENT
  Age: 52 Year
  Sex: Male

DRUGS (3)
  1. ADVAFERON (A643_INTERFERON ALFACON-1) [Suspect]
     Indication: HEPATITIS C
     Dosage: 18MU;QD;SUBCUTANEOUS
     Route: 058
     Dates: start: 20020306
  2. AMLODIPINE BESYLATE [Concomitant]
  3. LORMETAZEPAM [Concomitant]

REACTIONS (9)
  - CONDITION AGGRAVATED [None]
  - FALL [None]
  - HEADACHE [None]
  - LIVER DISORDER [None]
  - LOSS OF CONSCIOUSNESS [None]
  - PLATELET COUNT DECREASED [None]
  - RASH [None]
  - SICK SINUS SYNDROME [None]
  - VENTRICULAR ARRHYTHMIA [None]
